FAERS Safety Report 5924224-7 (Version None)
Quarter: 2008Q3

REPORT INFORMATION
  Report Type: 
  Country: None (occurrence: None)
  Receive Date: 20080909
  Receipt Date: 20080206
  Transmission Date: 20090109
  Serious: Yes (Death)
  Sender: FDA-Public Use
  Company Number: 163-20785-08011556

PATIENT
  Age: 62 Year
  Sex: Male

DRUGS (2)
  1. THALOMID [Suspect]
     Indication: MULTIPLE MYELOMA
     Dosage: 100 MG, 2 IN 1 D, ORAL ; ORAL
     Route: 048
     Dates: start: 20051021, end: 20060101
  2. THALOMID [Suspect]
     Indication: MULTIPLE MYELOMA
     Dosage: 100 MG, 2 IN 1 D, ORAL ; ORAL
     Route: 048
     Dates: start: 20080102, end: 20080101

REACTIONS (1)
  - MULTIPLE MYELOMA [None]
